FAERS Safety Report 21461124 (Version 1)
Quarter: 2022Q4

REPORT INFORMATION
  Report Type: Report from Study
  Country: US (occurrence: US)
  Receive Date: 20221015
  Receipt Date: 20221015
  Transmission Date: 20230113
  Serious: No
  Sender: FDA-Public Use
  Company Number: US-ABBVIE-22K-163-4426775-00

PATIENT
  Sex: Female

DRUGS (2)
  1. IMBRUVICA [Suspect]
     Active Substance: IBRUTINIB
     Indication: Chronic lymphocytic leukaemia
     Route: 048
     Dates: start: 202205
  2. PHENERGAN [Suspect]
     Active Substance: PROMETHAZINE HYDROCHLORIDE
     Indication: Sleep disorder

REACTIONS (10)
  - Gastrooesophageal reflux disease [Unknown]
  - Trichorrhexis [Unknown]
  - Choking [Unknown]
  - Unevaluable event [Unknown]
  - Insomnia [Unknown]
  - Asthenia [Unknown]
  - Contusion [Unknown]
  - Coccydynia [Unknown]
  - Nausea [Unknown]
  - Stress [Unknown]

NARRATIVE: CASE EVENT DATE: 20220101
